FAERS Safety Report 20044223 (Version 2)
Quarter: 2022Q2

REPORT INFORMATION
  Report Type: Report from Study
  Country: BE (occurrence: BE)
  Receive Date: 20211108
  Receipt Date: 20220606
  Transmission Date: 20220721
  Serious: Yes (Hospitalization, Other)
  Sender: FDA-Public Use
  Company Number: BE-ROCHE-2586587

PATIENT
  Age: 74 Year
  Sex: Male
  Weight: 84.2 kg

DRUGS (30)
  1. CARBOPLATIN [Suspect]
     Active Substance: CARBOPLATIN
     Indication: Small cell lung cancer metastatic
     Dosage: 630 MG
     Route: 065
     Dates: start: 20200122
  2. ETOPOSIDE [Suspect]
     Active Substance: ETOPOSIDE
     Indication: Small cell lung cancer metastatic
     Route: 042
     Dates: start: 20200122
  3. ATEZOLIZUMAB [Suspect]
     Active Substance: ATEZOLIZUMAB
     Indication: Small cell lung cancer metastatic
     Dosage: 1200 MG 3 TIMES A WEEK
     Route: 041
     Dates: start: 20200217
  4. ATEZOLIZUMAB [Suspect]
     Active Substance: ATEZOLIZUMAB
     Dosage: 1200 MG 3 TIMES A WEEK
     Route: 042
     Dates: start: 20200330
  5. ATEZOLIZUMAB [Suspect]
     Active Substance: ATEZOLIZUMAB
     Dosage: 1200 MG 3 TIMES A WEEK
     Route: 042
     Dates: start: 20200511
  6. ATEZOLIZUMAB [Suspect]
     Active Substance: ATEZOLIZUMAB
     Dosage: 1200 MG 3 TIMES A WEEK
     Route: 042
     Dates: start: 20200122
  7. ATEZOLIZUMAB [Suspect]
     Active Substance: ATEZOLIZUMAB
     Dosage: 1200 MG 3 TIMES A WEEK
     Route: 042
     Dates: start: 20200602
  8. ATEZOLIZUMAB [Suspect]
     Active Substance: ATEZOLIZUMAB
     Dosage: 1200 MG 3 TIMES A WEEK
     Route: 042
     Dates: start: 20200420
  9. ATEZOLIZUMAB [Suspect]
     Active Substance: ATEZOLIZUMAB
     Dosage: 1200 MG 3 TIMES A WEEK
     Route: 042
     Dates: start: 20200309
  10. AKYNZEO (NETUPITANT\PALONOSETRON) [Concomitant]
     Active Substance: NETUPITANT\PALONOSETRON
     Dates: start: 20200330
  11. LANOXIN [Concomitant]
     Active Substance: DIGOXIN
  12. LEVOTHYROXINE [Concomitant]
     Active Substance: LEVOTHYROXINE
  13. ALPRAZOLAM [Concomitant]
     Active Substance: ALPRAZOLAM
  14. ASPIRIN [Concomitant]
     Active Substance: ASPIRIN
  15. DEXAMETHASONE [Concomitant]
     Active Substance: DEXAMETHASONE
  16. TAMSULOSIN [Concomitant]
     Active Substance: TAMSULOSIN
  17. FLUTICASONE FUROATE [Concomitant]
     Active Substance: FLUTICASONE FUROATE
  18. LITICAN [ALIZAPRIDE HYDROCHLORIDE] [Concomitant]
  19. VITAPANTOL [Concomitant]
     Indication: Nasal dryness
     Dosage: UNK, 1X/DAY (0.5 PER DAY)
     Dates: start: 20200325
  20. BUMETANIDE [Concomitant]
     Active Substance: BUMETANIDE
     Dosage: UNK, 1X/DAY
     Dates: start: 20200401
  21. EDOXABAN TOSYLATE [Concomitant]
     Active Substance: EDOXABAN TOSYLATE
     Dates: start: 20191206, end: 20200602
  22. DIHYDROCODEINE [Concomitant]
     Active Substance: DIHYDROCODEINE
     Dosage: UNK, 1X/DAY (0.5 A DAY)
     Dates: start: 20200110
  23. ACETAMINOPHEN\TRAMADOL [Concomitant]
     Active Substance: ACETAMINOPHEN\TRAMADOL
  24. COMBIVENT [Concomitant]
     Active Substance: ALBUTEROL SULFATE\IPRATROPIUM BROMIDE
  25. MOLSIDOMINE [Concomitant]
     Active Substance: MOLSIDOMINE
  26. SYMBICORT [Concomitant]
     Active Substance: BUDESONIDE\FORMOTEROL FUMARATE DIHYDRATE
     Dates: start: 2016
  27. AMIODARONE [Concomitant]
     Active Substance: AMIODARONE
  28. LEVOCETIRIZINE [Concomitant]
     Active Substance: LEVOCETIRIZINE
  29. SIMVASTATIN [Concomitant]
     Active Substance: SIMVASTATIN
  30. LASIX [Concomitant]
     Active Substance: FUROSEMIDE

REACTIONS (9)
  - Dyspnoea [Recovered/Resolved]
  - Parkinson^s disease [Not Recovered/Not Resolved]
  - Pneumonia [Not Recovered/Not Resolved]
  - Pancytopenia [Recovered/Resolved]
  - Anaemia [Not Recovered/Not Resolved]
  - Dizziness [Recovered/Resolved]
  - Nausea [Recovered/Resolved]
  - Respiratory tract infection [Recovered/Resolved]
  - Haemoptysis [Not Recovered/Not Resolved]

NARRATIVE: CASE EVENT DATE: 20200302
